FAERS Safety Report 15664700 (Version 1)
Quarter: 2018Q4

REPORT INFORMATION
  Report Type: Spontaneous
  Country: US (occurrence: US)
  Receive Date: 20181128
  Receipt Date: 20181128
  Transmission Date: 20190205
  Serious: Yes (Hospitalization, Other)
  Sender: FDA-Public Use
  Company Number: US-PIRAMAL ENTERPRISES LIMITED-2018-PEL-003616

PATIENT

DRUGS (4)
  1. PROPOFOL. [Concomitant]
     Active Substance: PROPOFOL
     Dosage: 40 MILLIGRAM
     Route: 065
  2. ROCURONIUM [Concomitant]
     Active Substance: ROCURONIUM BROMIDE
     Dosage: 20 MILLIGRAM
     Route: 065
  3. NEOSTIGMINE. [Concomitant]
     Active Substance: NEOSTIGMINE METHYLSULFATE
     Dosage: 1 MILLIGRAM
     Route: 065
  4. SEVOFLURANE, USP [Suspect]
     Active Substance: SEVOFLURANE
     Dosage: 26.32 MILLILITER
     Route: 065

REACTIONS (9)
  - Tachycardia [Recovered/Resolved]
  - Somnolence [Recovered/Resolved]
  - Respiratory rate increased [Recovered/Resolved]
  - Hyperthermia malignant [Recovered/Resolved]
  - Hypercapnia [Recovered/Resolved]
  - Muscle rigidity [Recovered/Resolved]
  - Body temperature increased [Recovered/Resolved]
  - Muscle spasticity [Recovered/Resolved]
  - Mental status changes [Recovered/Resolved]
